FAERS Safety Report 10367398 (Version 2)
Quarter: 2016Q1

REPORT INFORMATION
  Report Type: Report from Study
  Country: US (occurrence: US)
  Receive Date: 20140807
  Receipt Date: 20160302
  Transmission Date: 20160525
  Serious: Yes (Other)
  Sender: FDA-Public Use
  Company Number: US-ROCHE-1384706

PATIENT
  Age: 55 Year
  Sex: Male

DRUGS (6)
  1. PEGASYS [Suspect]
     Active Substance: PEGINTERFERON ALFA-2A
     Dosage: FOR 48 WEEKS
     Route: 058
     Dates: start: 20120814, end: 20120927
  2. COPEGUS [Suspect]
     Active Substance: RIBAVIRIN
     Dosage: 200 MG QAM AND 200 MG QPM; WITH FOOD
     Route: 048
  3. PEGASYS [Suspect]
     Active Substance: PEGINTERFERON ALFA-2A
     Indication: CHRONIC HEPATITIS C
     Dosage: FOR 48 WEEKS
     Route: 058
  4. PEGASYS [Suspect]
     Active Substance: PEGINTERFERON ALFA-2A
     Dosage: FOR 48 WEEKS
     Route: 058
     Dates: start: 20120510
  5. COPEGUS [Suspect]
     Active Substance: RIBAVIRIN
     Dosage: 600 MG QAM AND 600 MG QPM
     Route: 048
  6. COPEGUS [Suspect]
     Active Substance: RIBAVIRIN
     Indication: CHRONIC HEPATITIS C
     Dosage: 400MG EVERY MORNING AND EVENING WITH FOOD
     Route: 048

REACTIONS (9)
  - Pain [Unknown]
  - Anaemia [Unknown]
  - Fall [Unknown]
  - Fatigue [Unknown]
  - Pancytopenia [Unknown]
  - Malaise [Unknown]
  - Liver disorder [Recovering/Resolving]
  - Hepatic cirrhosis [Unknown]
  - Treatment failure [Unknown]

NARRATIVE: CASE EVENT DATE: 201208
